FAERS Safety Report 25318447 (Version 1)
Quarter: 2025Q2

REPORT INFORMATION
  Report Type: Spontaneous
  Country: US (occurrence: US)
  Receive Date: 20250515
  Receipt Date: 20250515
  Transmission Date: 20250717
  Serious: Yes (Death, Other)
  Sender: SANOFI AVENTIS
  Company Number: US-SA-2025SA125952

PATIENT
  Age: 82 Year
  Sex: Male

DRUGS (8)
  1. DUPIXENT [Suspect]
     Active Substance: DUPILUMAB
     Indication: Dermatitis atopic
     Route: 058
     Dates: start: 20201215, end: 20201215
  2. DUPIXENT [Suspect]
     Active Substance: DUPILUMAB
     Dosage: 300 MG, QOW
     Route: 058
     Dates: start: 202012
  3. PREDNISONE [Concomitant]
     Active Substance: PREDNISONE
  4. CLOBETASOL [Concomitant]
     Active Substance: CLOBETASOL
  5. BACTRIM [Concomitant]
     Active Substance: SULFAMETHOXAZOLE\TRIMETHOPRIM
  6. HYDROCORTISONE [Concomitant]
     Active Substance: HYDROCORTISONE
  7. HYDROCHLOROTHIAZIDE [Concomitant]
     Active Substance: HYDROCHLOROTHIAZIDE
  8. ALDARA [Concomitant]
     Active Substance: IMIQUIMOD

REACTIONS (4)
  - Myocardial infarction [Fatal]
  - Influenza [Recovered/Resolved]
  - Upper respiratory tract infection [Recovered/Resolved]
  - Dermatitis atopic [Unknown]
